FAERS Safety Report 14423947 (Version 2)
Quarter: 2018Q1

REPORT INFORMATION
  Report Type: Report from Study
  Country: None (occurrence: US)
  Receive Date: 20180123
  Receipt Date: 20180201
  Transmission Date: 20180509
  Serious: Yes (Hospitalization)
  Sender: FDA-Public Use
  Company Number: US-ABBVIE-18K-163-2231123-00

PATIENT
  Sex: Female
  Weight: 127.57 kg

DRUGS (2)
  1. HUMIRA [Suspect]
     Active Substance: ADALIMUMAB
     Route: 058
     Dates: start: 201712
  2. HUMIRA [Suspect]
     Active Substance: ADALIMUMAB
     Indication: CROHN^S DISEASE
     Route: 058
     Dates: start: 201710, end: 201711

REACTIONS (15)
  - Nausea [Recovered/Resolved]
  - Cough [Recovered/Resolved]
  - Abdominal pain [Recovered/Resolved]
  - Vomiting [Recovered/Resolved]
  - Oropharyngeal pain [Recovered/Resolved]
  - Hernia [Unknown]
  - Vomiting [Recovered/Resolved]
  - Kidney infection [Not Recovered/Not Resolved]
  - Crohn^s disease [Unknown]
  - Chills [Recovered/Resolved]
  - Abdominal pain [Recovered/Resolved]
  - Pancreatitis [Unknown]
  - Nausea [Recovered/Resolved]
  - Sinusitis [Recovered/Resolved]
  - Renal pain [Not Recovered/Not Resolved]

NARRATIVE: CASE EVENT DATE: 201711
